FAERS Safety Report 8025554-8 (Version None)
Quarter: 2012Q1

REPORT INFORMATION
  Report Type: 
  Country: None (occurrence: None)
  Receive Date: 20120105
  Receipt Date: 20111230
  Transmission Date: 20120608
  Serious: Yes (Other)
  Sender: FDA-Public Use
  Company Number: CA-ABBOTT-12P-028-0888394-00

PATIENT
  Sex: Female
  Weight: 49.9 kg

DRUGS (8)
  1. PHENOBARBITAL TAB [Interacting]
     Indication: PRODUCT USED FOR UNKNOWN INDICATION
     Dosage: AT BEDTIME
     Dates: start: 19741101, end: 20111027
  2. BIAXIN [Suspect]
     Indication: PRODUCT USED FOR UNKNOWN INDICATION
  3. DILANTIN [Interacting]
     Indication: CONVULSION
     Route: 048
     Dates: start: 19741101, end: 19890101
  4. SYNTHROID [Concomitant]
     Indication: HYPOTHYROIDISM
     Dates: start: 19800101
  5. CARBOPLATIN [Interacting]
     Indication: CERVIX CARCINOMA
     Dates: start: 20110801
  6. MINOCYCLINE HCL [Interacting]
     Indication: PRODUCT USED FOR UNKNOWN INDICATION
     Dates: start: 20110101
  7. DILANTIN [Interacting]
     Indication: POST-TRAUMATIC EPILEPSY
     Route: 047
     Dates: start: 19890101, end: 20111027
  8. BACTRIM [Interacting]
     Indication: PRODUCT USED FOR UNKNOWN INDICATION

REACTIONS (37)
  - CHOLECYSTITIS ACUTE [None]
  - CERVIX CARCINOMA [None]
  - FOOD INTOLERANCE [None]
  - HYPOAESTHESIA [None]
  - INCOHERENT [None]
  - SLEEP-RELATED EATING DISORDER [None]
  - BRAIN INJURY [None]
  - SOMNOLENCE [None]
  - DEPRESSION [None]
  - AREFLEXIA [None]
  - SLEEP DISORDER [None]
  - GAIT DISTURBANCE [None]
  - DYSPHAGIA [None]
  - WEIGHT DECREASED [None]
  - DRUG LEVEL DECREASED [None]
  - BRADYPHRENIA [None]
  - LYME DISEASE [None]
  - HYPOREFLEXIA [None]
  - BLOOD PRESSURE DECREASED [None]
  - FEAR [None]
  - SYNCOPE [None]
  - QUALITY OF LIFE DECREASED [None]
  - INAPPROPRIATE AFFECT [None]
  - DYSKINESIA [None]
  - DRUG INTERACTION [None]
  - PAIN IN EXTREMITY [None]
  - VIBRATORY SENSE INCREASED [None]
  - MENTAL IMPAIRMENT [None]
  - DRUG EFFECT INCREASED [None]
  - DROP ATTACKS [None]
  - FEELING ABNORMAL [None]
  - PARAESTHESIA [None]
  - NYSTAGMUS [None]
  - ASTHENIA [None]
  - TOXICITY TO VARIOUS AGENTS [None]
  - MUSCULAR WEAKNESS [None]
  - PERSONALITY DISORDER [None]
